FAERS Safety Report 6154417-8 (Version None)
Quarter: 2009Q2

REPORT INFORMATION
  Report Type: 
  Country: None (occurrence: None)
  Receive Date: 20090410
  Receipt Date: 20090410
  Transmission Date: 20091009
  Serious: Yes (Hospitalization)
  Sender: FDA-Public Use
  Company Number: None

PATIENT
  Sex: Male
  Weight: 94.6 kg

DRUGS (2)
  1. CISPLATIN [Suspect]
     Dosage: 330 MG
     Dates: end: 20090324
  2. VINORELBINE TARTRATE [Suspect]
     Dosage: 264 MG
     Dates: end: 20090331

REACTIONS (5)
  - FATIGUE [None]
  - FEBRILE NEUTROPENIA [None]
  - HAEMOGLOBIN DECREASED [None]
  - PYREXIA [None]
  - WHITE BLOOD CELL COUNT DECREASED [None]
